FAERS Safety Report 6982262-X (Version None)
Quarter: 2010Q3

REPORT INFORMATION
  Report Type: 
  Country: None (occurrence: None)
  Receive Date: 20100914
  Receipt Date: 20091209
  Transmission Date: 20110219
  Serious: No
  Sender: FDA-Public Use
  Company Number: US-PFIZER INC-2009308293

PATIENT
  Sex: Female
  Weight: 106 kg

DRUGS (14)
  1. LYRICA [Suspect]
     Dosage: 25 MG, UNK
     Route: 048
  2. REVLIMID [Suspect]
     Indication: MULTIPLE MYELOMA
     Dosage: 25 MG, 1X/DAY
     Route: 048
     Dates: start: 20090323
  3. DECADRON [Concomitant]
     Dosage: 0.5 MG, UNK
     Route: 048
  4. PREMARIN [Concomitant]
     Dosage: 0.3 MG, UNK
     Route: 048
  5. POTASSIUM CHLORIDE [Concomitant]
     Dosage: 40 MEQ, UNK
  6. ZOMETA [Concomitant]
     Dosage: 4 MG/5 ML
  7. GLUCOPHAGE [Concomitant]
     Dosage: 500 MG, UNK
     Route: 048
  8. LISINOPRIL [Concomitant]
     Dosage: 40 MG, UNK
     Route: 048
  9. ACYCLOVIR [Concomitant]
     Dosage: 200 MG, UNK
     Route: 048
  10. ACETYLSALICYLIC ACID [Concomitant]
     Dosage: 325 MG, UNK
     Route: 048
  11. FOLIC ACID [Concomitant]
     Dosage: 1 MG, UNK
     Route: 048
  12. MOBIC [Concomitant]
     Dosage: 7.5 MG, UNK
     Route: 048
  13. ASCORBIC ACID/IRON [Concomitant]
     Dosage: UNK
     Route: 048
  14. MAGNESIUM OXIDE [Concomitant]
     Dosage: 400 MG, UNK
     Route: 048

REACTIONS (1)
  - JOINT SWELLING [None]
